FAERS Safety Report 9815765 (Version 1)
Quarter: 2014Q1

REPORT INFORMATION
  Report Type: Spontaneous
  Country: US (occurrence: US)
  Receive Date: 20140114
  Receipt Date: 20140114
  Transmission Date: 20141002
  Serious: Yes (Hospitalization, Other)
  Sender: FDA-Public Use
  Company Number: US-B.I. PHARMACEUTICALS,INC./RIDGEFIELD-2014-BI-01371BP

PATIENT
  Age: 64 Year
  Sex: Female

DRUGS (2)
  1. PRADAXA [Suspect]
     Indication: ATRIAL FIBRILLATION
     Dosage: 300 MG
     Route: 048
     Dates: start: 201201, end: 201303
  2. SOMATOSTATIN MONTHLY [Concomitant]
     Indication: HEPATIC CANCER
     Dosage: FORMULATION: INTRAVENOUS
     Route: 042

REACTIONS (7)
  - Hepatic cancer [Not Recovered/Not Resolved]
  - Hepatic neoplasm [Recovered/Resolved]
  - Haemoptysis [Recovered/Resolved]
  - Goitre [Recovered/Resolved]
  - Temperature intolerance [Not Recovered/Not Resolved]
  - Fatigue [Not Recovered/Not Resolved]
  - Cough [Recovered/Resolved]
